FAERS Safety Report 9189714 (Version 3)
Quarter: 2013Q3

REPORT INFORMATION
  Report Type: Spontaneous
  Country: US (occurrence: US)
  Receive Date: 20130326
  Receipt Date: 20130722
  Transmission Date: 20140515
  Serious: Yes (Hospitalization, Other)
  Sender: FDA-Public Use
  Company Number: US-BAYER-2013-037510

PATIENT
  Age: 23 Year
  Sex: Female

DRUGS (13)
  1. YASMIN [Suspect]
     Indication: ACNE
     Dosage: UNK
     Dates: start: 2004, end: 2007
  2. TOPAMAX [Concomitant]
  3. WELLBUTRIN [Concomitant]
  4. BUDEPRION [Concomitant]
  5. SULFAMETHOXAZOLE/TRIMETHOPRIM [Concomitant]
  6. COMPAZINE [Concomitant]
  7. BENADRYL [Concomitant]
  8. DILAUDID [Concomitant]
  9. NACL [Concomitant]
  10. DIAMOX [ACETAZOLAMIDE] [Concomitant]
  11. RESTORIL [Concomitant]
  12. POTASSIUM [Concomitant]
  13. LASIX [Concomitant]

REACTIONS (7)
  - Intracranial venous sinus thrombosis [Recovered/Resolved]
  - Jugular vein thrombosis [Recovered/Resolved]
  - Transverse sinus thrombosis [Recovered/Resolved]
  - Gallbladder disorder [None]
  - Cholecystitis acute [None]
  - Pain [None]
  - Pain [None]
